FAERS Safety Report 6742781-8 (Version None)
Quarter: 2010Q2

REPORT INFORMATION
  Report Type: 
  Country: None (occurrence: None)
  Receive Date: 20100525
  Receipt Date: 20100208
  Transmission Date: 20101027
  Serious: Yes (Other)
  Sender: FDA-Public Use
  Company Number: AUR-APL-2010-01054

PATIENT
  Age: 82 Year
  Sex: Male
  Weight: 77 kg

DRUGS (8)
  1. LISINOPRIL [Suspect]
     Indication: HYPERTENSION
     Dosage: 10MG - DAILY - ORAL
     Route: 048
  2. METOPROLOL SUCCINATE EXTENDED RELEASE [Suspect]
     Indication: HYPERTENSION
     Dosage: 50MG - DAILY - ORAL
     Route: 048
  3. SULFADIAZIDE SILVER 1% CREAM [Suspect]
     Indication: THERMAL BURN
     Dosage: APPLIED DAILY - TOPICALLY TO BURN
     Route: 061
     Dates: start: 20091021, end: 20091201
  4. PANTOPRAZOLE [Suspect]
     Indication: GASTROOESOPHAGEAL REFLUX DISEASE
     Dosage: 40 MG - BID - ORAL
     Route: 048
  5. CRESTOR [Suspect]
     Indication: BLOOD CHOLESTEROL INCREASED
     Dosage: 10MG -DAILY - ORAL
     Route: 048
  6. PLAVIX [Suspect]
     Indication: CARDIAC DISORDER
     Dosage: 75MG - DAILY - ORAL
     Route: 048
  7. ACETYLASLICYLIC ACID [Suspect]
     Indication: CARDIAC DISORDER
     Dosage: 325 MG - DAILY - ORAL
     Route: 048
  8. METAMUCIL-2 [Suspect]
     Indication: CONSTIPATION
     Dosage: 2 CAPSULES - DAILY - ORAL
     Route: 048

REACTIONS (3)
  - HYPERSENSITIVITY [None]
  - IMPAIRED HEALING [None]
  - THERMAL BURN [None]
